FAERS Safety Report 19947514 (Version 2)
Quarter: 2021Q4

REPORT INFORMATION
  Report Type: Spontaneous
  Country: DE (occurrence: DE)
  Receive Date: 20211012
  Receipt Date: 20211021
  Transmission Date: 20220303
  Serious: Yes (Hospitalization)
  Sender: FDA-Public Use
  Company Number: DE-ADRED-06498-01

PATIENT
  Age: 70 Year
  Sex: Female
  Weight: 59 kg

DRUGS (12)
  1. GABAPENTIN [Suspect]
     Active Substance: GABAPENTIN
     Indication: Product used for unknown indication
     Dosage: UNK
  2. ACYCLOVIR [Concomitant]
     Active Substance: ACYCLOVIR
     Dosage: 800 MILLIGRAM,800 MG, 1-0-1-0, TABLETTEN
     Route: 048
  3. BISOPROLOL [Concomitant]
     Active Substance: BISOPROLOL
     Dosage: 5 MILLIGRAM, 5 MG, 1-0-1-0, TABLETTEN
     Route: 048
  4. MOXONIDINE [Concomitant]
     Active Substance: MOXONIDINE
     Dosage: 0.3 MILLIGRAM, 0.3 MG, 0-0-1-0, TABLETTEN
     Route: 048
  5. CINACALCET [Concomitant]
     Active Substance: CINACALCET
     Dosage: 30 MILLIGRAM,30 MG, 4 MAL W?CHENTLICH, TABLETTEN
     Route: 048
  6. DIHYDRALAZINE SULFATE [Concomitant]
     Active Substance: DIHYDRALAZINE SULFATE
     Dosage: 25 MILLIGRAM, 25 MG, BIS ZU 4 MAL T?GLICH JE NACH RR, TABLETTEN
     Route: 048
  7. SIMVASTATIN [Concomitant]
     Active Substance: SIMVASTATIN
     Dosage: 40 MILLIGRAM,40 MG, 0-0-1-0, TABLETTEN
     Route: 048
  8. ASPIRIN [Concomitant]
     Active Substance: ASPIRIN
     Dosage: 100 MILLIGRAM, 100 MG, 0-0-1-0, TABLETTEN
     Route: 048
  9. ZINC OXIDE [Concomitant]
     Active Substance: ZINC OXIDE
     Dosage: 2 BIS 3 MAL T?GLICH, SALBE
     Route: 003
  10. OMEPRAZOLE [Concomitant]
     Active Substance: OMEPRAZOLE
     Dosage: 40 MILLIGRAM, 40 MG, 1-0-1-0, KAPSELN
     Route: 048
  11. ENOXAPARIN [Concomitant]
     Active Substance: ENOXAPARIN
     Dosage: 6000 IE, 0-0-1-0, INJEKTIONS-/INFUSIONSL?SUNG
     Route: 058
  12. CANDESARTAN [Concomitant]
     Active Substance: CANDESARTAN
     Dosage: 16 MILLIGRAM, 16 MG, 1-0-0-0, TABLETTEN
     Route: 048

REACTIONS (4)
  - Language disorder [Unknown]
  - Herpes zoster [Unknown]
  - Headache [Unknown]
  - Dizziness [Unknown]
